FAERS Safety Report 5761845-9 (Version None)
Quarter: 2008Q2

REPORT INFORMATION
  Report Type: 
  Country: None (occurrence: None)
  Receive Date: 20080606
  Receipt Date: 20080527
  Transmission Date: 20081010
  Serious: Yes (Other)
  Sender: FDA-Public Use
  Company Number: US-PFIZER INC-2008045836

PATIENT
  Sex: Female
  Weight: 56.7 kg

DRUGS (9)
  1. CHANTIX [Suspect]
     Indication: SMOKING CESSATION THERAPY
     Dates: start: 20080501, end: 20080501
  2. PLAQUENIL [Concomitant]
  3. FOLIC ACID [Concomitant]
  4. AMBIEN [Concomitant]
  5. FLEXERIL [Concomitant]
  6. ARICEPT [Concomitant]
  7. ZOLOFT [Concomitant]
  8. XANAX [Concomitant]
  9. HYDROCODONE [Concomitant]

REACTIONS (2)
  - INSOMNIA [None]
  - PANIC ATTACK [None]
